FAERS Safety Report 12435731 (Version 1)
Quarter: 2016Q2

REPORT INFORMATION
  Report Type: Spontaneous
  Country: US (occurrence: US)
  Receive Date: 20160603
  Receipt Date: 20160603
  Transmission Date: 20160815
  Serious: No
  Sender: FDA-Public Use
  Company Number: US-ROCHE-1703317

PATIENT
  Sex: Female

DRUGS (6)
  1. CLOBETASOL [Concomitant]
     Active Substance: CLOBETASOL
  2. XGEVA [Concomitant]
     Active Substance: DENOSUMAB
     Dosage: INJECTIONS EVERY 4-6 MONTHS
     Route: 065
  3. XELODA [Suspect]
     Active Substance: CAPECITABINE
     Indication: HEPATIC CANCER METASTATIC
     Dosage: ^500 MG MORNINGS AND NIGHTS EVERY OTHER WEEK^
     Route: 065
     Dates: start: 201410
  4. CELEBREX [Concomitant]
     Active Substance: CELECOXIB
  5. XELODA [Suspect]
     Active Substance: CAPECITABINE
     Indication: BONE CANCER METASTATIC
  6. AMMONIUM LACTATE. [Concomitant]
     Active Substance: AMMONIUM LACTATE

REACTIONS (4)
  - Palmar-plantar erythrodysaesthesia syndrome [Unknown]
  - Skin fissures [Unknown]
  - Contraindicated drug administered [Unknown]
  - Peripheral swelling [Unknown]
